FAERS Safety Report 5062813-5 (Version None)
Quarter: 2006Q3

REPORT INFORMATION
  Report Type: 
  Country: None (occurrence: None)
  Receive Date: 20060724
  Receipt Date: 20060710
  Transmission Date: 20061208
  Serious: Yes (Disabling, Other)
  Sender: FDA-Public Use
  Company Number: 2006085399

PATIENT
  Age: 60 Year
  Sex: Male

DRUGS (1)
  1. VIAGRA [Suspect]
     Indication: ERECTILE DYSFUNCTION
     Dosage: 100 MG (100 MG, AS NECESSARY), ORAL
     Route: 048
     Dates: end: 20060701

REACTIONS (4)
  - BLINDNESS UNILATERAL [None]
  - ISCHAEMIA [None]
  - OPTIC DISC DISORDER [None]
  - RETINAL VEIN OCCLUSION [None]
